FAERS Safety Report 24759957 (Version 1)
Quarter: 2024Q4

REPORT INFORMATION
  Report Type: Spontaneous
  Country: CN (occurrence: CN)
  Receive Date: 20241220
  Receipt Date: 20241220
  Transmission Date: 20250115
  Serious: Yes (Hospitalization, Other)
  Sender: BAXTER
  Company Number: None

PATIENT
  Age: 2 Year
  Sex: Female
  Weight: 11.7 kg

DRUGS (9)
  1. CYCLOPHOSPHAMIDE [Suspect]
     Active Substance: CYCLOPHOSPHAMIDE
     Indication: Retroperitoneal cancer
     Dosage: 0.95 G, ONE TIME IN ONE DAY, DILUTED WITH 4:1 GLUCOSE AND SODIUM CHLORIDE 250 ML
     Route: 041
     Dates: start: 20241010, end: 20241010
  2. CYCLOPHOSPHAMIDE [Suspect]
     Active Substance: CYCLOPHOSPHAMIDE
     Indication: Chemotherapy
  3. SODIUM CHLORIDE [Suspect]
     Active Substance: SODIUM CHLORIDE
     Indication: Medication dilution
     Dosage: 250 ML (0.9%, INJECTION), ONE TIME IN ONE DAY, USED TO DILUTE EPIRUBICIN HYDROCHLORIDE 10 MG
     Route: 041
     Dates: start: 20241010, end: 20241010
  4. SODIUM CHLORIDE [Suspect]
     Active Substance: SODIUM CHLORIDE
     Dosage: 50 ML (0.9%, INJECTION), ONE TIME IN ONE DAY, USED TO DILUTE VINDESINE SULFATE 1.2 MG
     Route: 041
     Dates: start: 20241010, end: 20241110
  5. DEXTROSE\SODIUM CHLORIDE [Suspect]
     Active Substance: DEXTROSE\SODIUM CHLORIDE
     Indication: Medication dilution
     Dosage: 250 ML (4:1, INJECTION), ONE TIME IN ONE DAY, USED TO DILUTE CYCLOPHOSPHAMIDE 0.95 G
     Route: 041
     Dates: start: 20241010, end: 20241010
  6. EPIRUBICIN [Suspect]
     Active Substance: EPIRUBICIN
     Indication: Retroperitoneal cancer
     Dosage: 10 MG, ONE TIME IN ONE DAY, DILUTED WITH 0.9% SODIUM CHLORIDE 250 ML
     Route: 041
     Dates: start: 20241010, end: 20241010
  7. EPIRUBICIN [Suspect]
     Active Substance: EPIRUBICIN
     Indication: Chemotherapy
  8. VINDESINE SULFATE [Suspect]
     Active Substance: VINDESINE SULFATE
     Indication: Retroperitoneal cancer
     Dosage: 1.2 MG, ONE TIME IN ONE DAY, DILUTED WITH 0.9% SODIUM CHLORIDE 50 ML
     Route: 041
     Dates: start: 20241010, end: 20241110
  9. VINDESINE SULFATE [Suspect]
     Active Substance: VINDESINE SULFATE
     Indication: Chemotherapy

REACTIONS (2)
  - Myelosuppression [Recovering/Resolving]
  - Neutrophil count decreased [Recovering/Resolving]

NARRATIVE: CASE EVENT DATE: 20241011
